FAERS Safety Report 9909410 (Version 3)
Quarter: 2015Q3

REPORT INFORMATION
  Report Type: Spontaneous
  Country: US (occurrence: US)
  Receive Date: 20140219
  Receipt Date: 20150811
  Transmission Date: 20151125
  Serious: No
  Sender: FDA-Public Use
  Company Number: US-GILEAD-2012-0052717

PATIENT
  Age: 45 Year
  Sex: Female

DRUGS (2)
  1. LETAIRIS [Suspect]
     Active Substance: AMBRISENTAN
     Indication: PULMONARY HYPERTENSION
     Dosage: 5 MG, UNK
     Route: 048
     Dates: start: 20101102
  2. LETAIRIS [Suspect]
     Active Substance: AMBRISENTAN
     Indication: SCLERODERMA

REACTIONS (7)
  - Influenza [Unknown]
  - Vomiting [Unknown]
  - Influenza like illness [Unknown]
  - Asthenia [Unknown]
  - Pain [Unknown]
  - Unevaluable event [Unknown]
  - Headache [Unknown]
